FAERS Safety Report 14323765 (Version 1)
Quarter: 2017Q4

REPORT INFORMATION
  Report Type: Other
  Country: US (occurrence: US)
  Receive Date: 20171226
  Receipt Date: 20171226
  Transmission Date: 20180321
  Serious: Yes (Other)
  Sender: FDA-Public Use
  Company Number: US-LUPIN PHARMACEUTICALS INC.-2017-07388

PATIENT
  Sex: Female

DRUGS (1)
  1. MIBELAS 24 FE [Suspect]
     Active Substance: ETHINYL ESTRADIOL\NORETHINDRONE ACETATE
     Indication: CONTRACEPTION
     Dosage: UNKNOWN
     Route: 065

REACTIONS (8)
  - Depression [Unknown]
  - Suicidal ideation [Unknown]
  - Weight increased [Unknown]
  - Alopecia [Unknown]
  - Pain [Unknown]
  - Mood swings [Unknown]
  - Menorrhagia [Unknown]
  - Muscle spasms [Unknown]
